FAERS Safety Report 6074304-3 (Version None)
Quarter: 2009Q1

REPORT INFORMATION
  Report Type: 
  Country: None (occurrence: None)
  Receive Date: 20090211
  Receipt Date: 20090205
  Transmission Date: 20090719
  Serious: Yes (Death, Life-Threatening, Other)
  Sender: FDA-Public Use
  Company Number: AU-ROXANE LABORATORIES, INC.-2009-RO-00118RO

PATIENT
  Age: 7 Day
  Sex: Female
  Weight: 1 kg

DRUGS (7)
  1. MORPHINE [Suspect]
     Indication: SEDATION
     Dates: start: 20070301
  2. NALOXONE [Suspect]
     Indication: OVERDOSE
     Dates: start: 20070301
  3. ADRENALINE [Suspect]
     Indication: CARDIAC ARREST
     Dates: start: 20070301
  4. OXYGEN [Suspect]
     Indication: NEONATAL RESPIRATORY DISTRESS SYNDROME
     Dates: start: 20070301
  5. NITRIC OXIDE [Suspect]
     Indication: NEONATAL RESPIRATORY DISTRESS SYNDROME
     Route: 055
     Dates: start: 20070301
  6. SALINE [Concomitant]
     Indication: BLOOD PRESSURE DECREASED
  7. DOPAMINE HCL [Concomitant]
     Indication: BLOOD PRESSURE DECREASED

REACTIONS (6)
  - ACCIDENTAL OVERDOSE [None]
  - ACIDOSIS [None]
  - BLOOD PRESSURE DECREASED [None]
  - BRONCHOPULMONARY DYSPLASIA [None]
  - CARDIAC ARREST [None]
  - DEATH [None]
